FAERS Safety Report 8054985-5 (Version None)
Quarter: 2012Q1

REPORT INFORMATION
  Report Type: 
  Country: None (occurrence: None)
  Receive Date: 20120119
  Receipt Date: 20120111
  Transmission Date: 20120608
  Serious: Yes (Hospitalization, Disabling, Congenital Anomaly, Other)
  Sender: FDA-Public Use
  Company Number: US-PFIZER INC-2011105857

PATIENT
  Sex: Male
  Weight: 2.9 kg

DRUGS (14)
  1. FIORINAL [Concomitant]
     Indication: CLUSTER HEADACHE
     Dosage: UNK
     Route: 064
  2. REGLAN [Concomitant]
     Dosage: 10 MG, EVERY 6 PM
     Route: 064
  3. RESTORIL [Concomitant]
     Dosage: UNK
     Route: 064
  4. PRILOSEC [Concomitant]
     Dosage: UNK
     Route: 064
  5. ACETAMINOPHEN [Concomitant]
     Indication: PAIN
     Dosage: UNK
     Route: 064
  6. EFFEXOR XR [Suspect]
     Indication: DEPRESSION
     Dosage: 150 MG, UNK
     Route: 064
     Dates: start: 20041101
  7. EFFEXOR XR [Suspect]
     Dosage: 125 MG, EVERY DAY
     Route: 064
     Dates: start: 20050606
  8. FIORICET [Concomitant]
     Dosage: UNK, EVERY 4-6 PM
     Route: 064
  9. PROCARDIA [Concomitant]
     Dosage: 10 MG, EVERY FOUR HOURS
  10. EFFEXOR XR [Suspect]
     Dosage: 150 MG, UNK
     Route: 064
     Dates: start: 20050617
  11. EFFEXOR [Suspect]
     Indication: DEPRESSION
     Dosage: 75 MG, EVERY DAY
     Route: 064
     Dates: start: 20051213
  12. DARVOCET [Concomitant]
     Indication: PAIN
     Dosage: UNK, 1X/DAY
     Route: 064
  13. AZITHROMYCIN [Concomitant]
     Indication: PNEUMONIA
     Dosage: UNK
     Route: 064
     Dates: start: 20060105
  14. PROCARDIA [Concomitant]
     Indication: PAIN
     Dosage: 10 OR 20 MG INITIALLY IN THE MORNING
     Route: 064

REACTIONS (35)
  - FEEDING DISORDER NEONATAL [None]
  - PNEUMONIA VIRAL [None]
  - DUCTUS ARTERIOSUS STENOSIS FOETAL [None]
  - VENTRICULAR SEPTAL DEFECT [None]
  - INTRAVENTRICULAR HAEMORRHAGE [None]
  - ANGIOEDEMA [None]
  - ASTHMA [None]
  - POSITIONAL PLAGIOCEPHALY [None]
  - PULMONARY VENO-OCCLUSIVE DISEASE [None]
  - ATRIAL TACHYCARDIA [None]
  - PULMONARY OEDEMA [None]
  - SICK SINUS SYNDROME [None]
  - URTICARIA [None]
  - TRICUSPID VALVE INCOMPETENCE [None]
  - DIARRHOEA [None]
  - ANOMALOUS PULMONARY VENOUS CONNECTION [None]
  - PNEUMONIA [None]
  - HYPOXIA [None]
  - LETHARGY [None]
  - PULMONARY ARTERY STENOSIS CONGENITAL [None]
  - PULMONARY HYPERTENSION [None]
  - ARRHYTHMIA [None]
  - ATELECTASIS [None]
  - RESPIRATORY DISTRESS [None]
  - VENTRICULAR TACHYCARDIA [None]
  - CARDIOMEGALY [None]
  - MATERNAL EXPOSURE TIMING UNSPECIFIED [None]
  - VIRAL UPPER RESPIRATORY TRACT INFECTION [None]
  - CONJUNCTIVITIS [None]
  - ATRIAL SEPTAL DEFECT [None]
  - KAWASAKI'S DISEASE [None]
  - SLEEP APNOEA SYNDROME [None]
  - GASTROOESOPHAGEAL REFLUX DISEASE [None]
  - BRONCHIOLITIS [None]
  - CANDIDIASIS [None]
